FAERS Safety Report 5835599-1 (Version None)
Quarter: 2008Q3

REPORT INFORMATION
  Report Type: 
  Country: None (occurrence: None)
  Receive Date: 20080806
  Receipt Date: 20080728
  Transmission Date: 20090109
  Serious: Yes (Other)
  Sender: FDA-Public Use
  Company Number: PHHY2008US08785

PATIENT
  Sex: Male

DRUGS (2)
  1. LIORESAL [Suspect]
     Indication: MUSCLE SPASTICITY
     Dosage: UNK UG, UNK
     Route: 037
  2. LIORESAL [Suspect]
     Dosage: 139 UG, DAILY

REACTIONS (3)
  - DISEASE PROGRESSION [None]
  - HYPERTONIA [None]
  - MUSCLE SPASTICITY [None]
